FAERS Safety Report 16253912 (Version 1)
Quarter: 2019Q2

REPORT INFORMATION
  Report Type: Spontaneous
  Country: FR (occurrence: FR)
  Receive Date: 20190430
  Receipt Date: 20190430
  Transmission Date: 20190711
  Serious: Yes (Other)
  Sender: FDA-Public Use
  Company Number: PHHY2019FR094651

PATIENT
  Age: 69 Year
  Sex: Female
  Weight: 60 kg

DRUGS (2)
  1. PACLITAXEL. [Suspect]
     Active Substance: PACLITAXEL
     Indication: CYSTADENOCARCINOMA OVARY
     Dosage: 228 MG, Q3W
     Route: 042
     Dates: start: 20121030
  2. CARBOPLATINE [Suspect]
     Active Substance: CARBOPLATIN
     Indication: CYSTADENOCARCINOMA OVARY
     Dosage: 410 MG, Q3W
     Route: 042
     Dates: start: 20121030

REACTIONS (1)
  - Paraesthesia [Not Recovered/Not Resolved]

NARRATIVE: CASE EVENT DATE: 20121212
